FAERS Safety Report 6384097-8 (Version None)
Quarter: 2009Q4

REPORT INFORMATION
  Report Type: 
  Country: None (occurrence: None)
  Receive Date: 20091001
  Receipt Date: 20090922
  Transmission Date: 20100525
  Serious: Yes (Death, Hospitalization, Other)
  Sender: FDA-Public Use
  Company Number: US-AMGEN-QUU365837

PATIENT
  Sex: Male

DRUGS (2)
  1. ENBREL [Suspect]
     Indication: PSORIATIC ARTHROPATHY
     Route: 058
     Dates: start: 20040701
  2. ENBREL [Suspect]
     Indication: PSORIASIS

REACTIONS (9)
  - CARDIAC DISORDER [None]
  - FULL BLOOD COUNT DECREASED [None]
  - GASTRIC ULCER HAEMORRHAGE [None]
  - INFECTION [None]
  - LUNG DISORDER [None]
  - LUNG NEOPLASM MALIGNANT [None]
  - POLYP [None]
  - POST PROCEDURAL COMPLICATION [None]
  - RENAL DISORDER [None]
